FAERS Safety Report 25354759 (Version 2)
Quarter: 2025Q3

REPORT INFORMATION
  Report Type: Spontaneous
  Country: EU (occurrence: EU)
  Receive Date: 20250524
  Receipt Date: 20250806
  Transmission Date: 20251021
  Serious: Yes (Hospitalization, Other)
  Sender: ROCHE
  Company Number: EU-ROCHE-10000284806

PATIENT
  Age: 33 Year
  Sex: Female

DRUGS (4)
  1. OCREVUS [Suspect]
     Active Substance: OCRELIZUMAB
     Indication: Product used for unknown indication
     Route: 065
     Dates: start: 20210628
  2. COMIRNATY [Concomitant]
     Dates: start: 20210515
  3. COMIRNATY [Concomitant]
     Dates: start: 20210610
  4. DOXYCYCLINE [Concomitant]
     Active Substance: DOXYCYCLINE

REACTIONS (6)
  - Neutropenia [Unknown]
  - Upper respiratory tract infection [Unknown]
  - Lymphopenia [Unknown]
  - Agranulocytosis [Unknown]
  - Rosacea [Unknown]
  - Borrelia test positive [Unknown]

NARRATIVE: CASE EVENT DATE: 20220901
